FAERS Safety Report 8760597 (Version 1)
Quarter: 2012Q4

REPORT INFORMATION
  Report Type: Spontaneous
  Country: US (occurrence: None)
  Receive Date: 20120828
  Receipt Date: 20120828
  Transmission Date: 20130627
  Serious: Yes (Disabling)
  Sender: FDA-Public Use
  Company Number: None

PATIENT
  Age: 67 Year
  Sex: Female
  Weight: 90.72 kg

DRUGS (1)
  1. PLAQUENIL 400MG SANOFI AVENTIS [Suspect]
     Indication: LUPUS SYNDROME
     Dosage: 1-2 times a day
     Route: 048

REACTIONS (3)
  - Visual impairment [None]
  - Pupillary disorder [None]
  - Retinopathy [None]
